FAERS Safety Report 16938056 (Version 2)
Quarter: 2020Q3

REPORT INFORMATION
  Report Type: Report from Study
  Country: US (occurrence: US)
  Receive Date: 20191018
  Receipt Date: 20191028
  Transmission Date: 20201104
  Serious: Yes (Hospitalization)
  Sender: FDA-Public Use
  Company Number: US-PFIZER INC-2019446661

PATIENT
  Age: 52 Year
  Sex: Male
  Weight: 73 kg

DRUGS (9)
  1. HYDROMORPHONE [Concomitant]
     Active Substance: HYDROMORPHONE
     Indication: TUMOUR PAIN
     Dosage: 4 MG, EVERY 3 HRS
     Route: 048
     Dates: start: 20180326
  2. MAGNESIUM OXIDE. [Concomitant]
     Active Substance: MAGNESIUM OXIDE
     Indication: HYPOMAGNESAEMIA
     Dosage: 400 MG, DAILY
     Route: 048
     Dates: start: 20171212
  3. HYOSCYAMINE. [Concomitant]
     Active Substance: HYOSCYAMINE
     Indication: ABDOMINAL PAIN
     Dosage: 0.125 MG, EVERY 6 HRS
     Route: 060
     Dates: start: 20181204
  4. SIMETHICONE (DIMETHICONE) [Concomitant]
     Active Substance: DIMETHICONE
     Indication: FLATULENCE
     Dosage: 80 MG, DAILY
     Route: 048
     Dates: start: 20180803
  5. TALAZOPARIB. [Suspect]
     Active Substance: TALAZOPARIB
     Dosage: 0.75 MG, EVERY DAY
     Route: 048
     Dates: start: 20181204, end: 20191013
  6. ONDANSETRON [Concomitant]
     Active Substance: ONDANSETRON
     Indication: NAUSEA
     Dosage: 8 MG, EVERY 8 HRS
     Route: 048
     Dates: start: 20180219
  7. PROCHLORPERAZINE. [Concomitant]
     Active Substance: PROCHLORPERAZINE
     Indication: NAUSEA
     Dosage: 10 MG, EVERY 6 HRS
     Route: 048
     Dates: start: 20180209
  8. TALAZOPARIB. [Suspect]
     Active Substance: TALAZOPARIB
     Indication: APPENDIX CANCER
     Dosage: 1.0 MG, EVERY DAY
     Route: 048
     Dates: start: 20180814, end: 20181203
  9. FENTANYL. [Concomitant]
     Active Substance: FENTANYL
     Indication: TUMOUR PAIN
     Dosage: 50 MCG, EVERY 48HRS
     Route: 062
     Dates: start: 20180222

REACTIONS (1)
  - Stoma site abscess [Recovering/Resolving]

NARRATIVE: CASE EVENT DATE: 20191013
